FAERS Safety Report 22652097 (Version 1)
Quarter: 2023Q2

REPORT INFORMATION
  Report Type: Spontaneous
  Country: US (occurrence: US)
  Receive Date: 20230628
  Receipt Date: 20230628
  Transmission Date: 20230722
  Serious: No
  Sender: FDA-Public Use
  Company Number: US-Emergent Biosolutions-23000183

PATIENT
  Age: 45 Year
  Sex: Male

DRUGS (11)
  1. CNJ-016 [Suspect]
     Active Substance: HUMAN VACCINIA VIRUS IMMUNE GLOBULIN
     Indication: Monkeypox
     Dosage: A DOSE
     Route: 042
  2. CNJ-016 [Suspect]
     Active Substance: HUMAN VACCINIA VIRUS IMMUNE GLOBULIN
     Dosage: 2 DOSES
     Route: 042
  3. JYNNEOS [Concomitant]
     Active Substance: VACCINIA VIRUS MODIFIED STRAIN ANKARA-BAVARIAN NORDIC NON-REPLICATING ANTIGEN
     Indication: Immunisation
     Route: 065
  4. TRIFLURIDINE [Concomitant]
     Active Substance: TRIFLURIDINE
     Indication: Prophylaxis
  5. TECOVIRIMAT [Concomitant]
     Active Substance: TECOVIRIMAT
     Indication: Monkeypox
     Dosage: 600 MG TWICE DAILY FOR 2 WEEKS
     Route: 048
  6. TECOVIRIMAT [Concomitant]
     Active Substance: TECOVIRIMAT
     Dosage: 200 MILLIGRAM, TWICE DAILY
     Route: 042
  7. DAPTOMYCIN [Concomitant]
     Active Substance: DAPTOMYCIN
     Indication: Monkeypox
     Route: 042
  8. LEVOFLOXACIN [Concomitant]
     Active Substance: LEVOFLOXACIN
     Indication: Monkeypox
     Route: 042
  9. CIDOFOVIR [Concomitant]
     Active Substance: CIDOFOVIR
     Indication: Monkeypox
     Dosage: 5 MILLIGRAM/KILOGRAM, SINGLE DOSE
     Route: 042
  10. PROBENECID [Concomitant]
     Active Substance: PROBENECID
     Indication: Monkeypox
     Route: 042
  11. PREDNISONE [Concomitant]
     Active Substance: PREDNISONE
     Indication: Immune reconstitution inflammatory syndrome
     Dosage: 100 MILLIGRAM

REACTIONS (1)
  - Off label use [Unknown]
